FAERS Safety Report 10501580 (Version 3)
Quarter: 2014Q4

REPORT INFORMATION
  Report Type: Spontaneous
  Country: BR (occurrence: BR)
  Receive Date: 20141007
  Receipt Date: 20141119
  Transmission Date: 20150528
  Serious: Yes (Other)
  Sender: FDA-Public Use
  Company Number: BR-SA-2014SA133922

PATIENT
  Sex: Male

DRUGS (4)
  1. ANTIHYPERTENSIVES [Concomitant]
     Active Substance: UNSPECIFIED INGREDIENT
     Dosage: IN THE MORNING AND AT NIGHT
  2. SOLOSTAR [Concomitant]
     Active Substance: DEVICE
  3. LANTUS SOLOSTAR [Suspect]
     Active Substance: INSULIN GLARGINE
     Indication: DIABETES MELLITUS
     Dosage: START DATE: APPROXIMATELY 2.5 YEARS AGO
     Route: 058
     Dates: start: 2011
  4. INSULIN [Concomitant]
     Active Substance: INSULIN NOS
     Dosage: BEFORE LUNCH AND BEFORE DINNER

REACTIONS (5)
  - Vitreous floaters [Recovering/Resolving]
  - Renal disorder [Unknown]
  - Cataract [Unknown]
  - Hearing impaired [Unknown]
  - Condition aggravated [Unknown]
